FAERS Safety Report 18177962 (Version 1)
Quarter: 2020Q3

REPORT INFORMATION
  Report Type: Spontaneous
  Country: US (occurrence: US)
  Receive Date: 20200820
  Receipt Date: 20200820
  Transmission Date: 20201103
  Serious: No
  Sender: FDA-Public Use
  Company Number: US-JAZZ-JPI-P-019277

PATIENT
  Age: 28 Year
  Sex: Female

DRUGS (10)
  1. XYLOMETAZOLINE [Concomitant]
     Active Substance: XYLOMETAZOLINE
  2. EXCEDRIN EXTRA STRENGTH [Concomitant]
     Active Substance: ACETAMINOPHEN\ASPIRIN\CAFFEINE
  3. TOPAMAX [Concomitant]
     Active Substance: TOPIRAMATE
  4. XYREM [Suspect]
     Active Substance: SODIUM OXYBATE
     Indication: NARCOLEPSY
     Dosage: 2.25 GRAM, BID
     Route: 048
     Dates: start: 201109, end: 201110
  5. IBUPROFEN. [Concomitant]
     Active Substance: IBUPROFEN
  6. XYREM [Suspect]
     Active Substance: SODIUM OXYBATE
     Indication: CATAPLEXY
     Dosage: 4.5 GRAM, BID
     Route: 048
     Dates: start: 201112, end: 201201
  7. ATOMOXETINE HCL [Concomitant]
     Active Substance: ATOMOXETINE HYDROCHLORIDE
  8. CONCERTA [Concomitant]
     Active Substance: METHYLPHENIDATE HYDROCHLORIDE
  9. TRINESSA [Concomitant]
     Active Substance: ETHINYL ESTRADIOL\NORGESTIMATE
  10. XYREM [Suspect]
     Active Substance: SODIUM OXYBATE
     Dosage: 2 GRAM, BID
     Route: 048
     Dates: start: 202005

REACTIONS (9)
  - Constipation [Unknown]
  - Tremor [Not Recovered/Not Resolved]
  - Pyrexia [Not Recovered/Not Resolved]
  - Pallor [Unknown]
  - Palpitations [Not Recovered/Not Resolved]
  - Dark circles under eyes [Unknown]
  - Feeling abnormal [Not Recovered/Not Resolved]
  - Headache [Unknown]
  - Feeling cold [Not Recovered/Not Resolved]

NARRATIVE: CASE EVENT DATE: 2011
